FAERS Safety Report 8205364-9 (Version None)
Quarter: 2012Q1

REPORT INFORMATION
  Report Type: 
  Country: None (occurrence: None)
  Receive Date: 20120313
  Receipt Date: 20120302
  Transmission Date: 20120608
  Serious: Yes (Other)
  Sender: FDA-Public Use
  Company Number: JP-JNJFOC-20111204444

PATIENT
  Age: 43 Year
  Sex: Female

DRUGS (2)
  1. REMICADE [Suspect]
     Route: 042
     Dates: start: 20080124
  2. REMICADE [Suspect]
     Indication: BEHCET'S SYNDROME
     Dosage: 15TH DOSE OF INFLIXIMAB
     Route: 042
     Dates: start: 20100106

REACTIONS (1)
  - ECZEMA [None]
